FAERS Safety Report 23738608 (Version 1)
Quarter: 2024Q2

REPORT INFORMATION
  Report Type: Spontaneous
  Country: US (occurrence: US)
  Receive Date: 20240412
  Receipt Date: 20240412
  Transmission Date: 20240716
  Serious: No
  Sender: FDA-Public Use
  Company Number: US-009507513-2403USA005295

PATIENT
  Age: 65 Year
  Sex: Female

DRUGS (5)
  1. KEYTRUDA [Suspect]
     Active Substance: PEMBROLIZUMAB
     Indication: Endometrial cancer recurrent
     Dosage: UNK
  2. CARBOPLATIN [Suspect]
     Active Substance: CARBOPLATIN
     Indication: Endometrial cancer recurrent
     Dosage: UNK
  3. PACLITAXEL [Suspect]
     Active Substance: PACLITAXEL
     Indication: Endometrial cancer recurrent
     Dosage: UNK
  4. DUPILUMAB [Concomitant]
     Active Substance: DUPILUMAB
     Indication: Asthma
  5. DUPILUMAB [Concomitant]
     Active Substance: DUPILUMAB
     Indication: Nasal polyps

REACTIONS (1)
  - Product use issue [Unknown]
